FAERS Safety Report 26192004 (Version 1)
Quarter: 2025Q4

REPORT INFORMATION
  Report Type: Spontaneous
  Country: EU (occurrence: EU)
  Receive Date: 20251223
  Receipt Date: 20251223
  Transmission Date: 20260118
  Serious: Yes (Disabling, Other)
  Sender: OTSUKA
  Company Number: EU-JNJFOC-20251209383

PATIENT
  Age: 32 Year
  Sex: Male

DRUGS (47)
  1. ARIPIPRAZOLE [Suspect]
     Active Substance: ARIPIPRAZOLE
     Indication: Mania
     Dosage: UNK
     Route: 065
  2. HALOPERIDOL [Suspect]
     Active Substance: HALOPERIDOL
     Indication: Bipolar I disorder
     Dosage: UNK
     Route: 065
  3. HALOPERIDOL [Suspect]
     Active Substance: HALOPERIDOL
     Indication: Autism spectrum disorder
  4. HALOPERIDOL [Suspect]
     Active Substance: HALOPERIDOL
     Indication: Substance use disorder
  5. HALOPERIDOL [Suspect]
     Active Substance: HALOPERIDOL
     Indication: Mania
  6. RISPERDAL [Suspect]
     Active Substance: RISPERIDONE
     Indication: Bipolar I disorder
     Dosage: UNK
     Route: 065
  7. RISPERDAL [Suspect]
     Active Substance: RISPERIDONE
     Indication: Autism spectrum disorder
  8. RISPERDAL [Suspect]
     Active Substance: RISPERIDONE
     Indication: Substance use disorder
  9. RISPERDAL [Suspect]
     Active Substance: RISPERIDONE
     Indication: Mania
  10. OLANZAPINE [Suspect]
     Active Substance: OLANZAPINE
     Indication: Bipolar I disorder
     Dosage: UNK
     Route: 065
  11. OLANZAPINE [Suspect]
     Active Substance: OLANZAPINE
     Indication: Autism spectrum disorder
  12. OLANZAPINE [Suspect]
     Active Substance: OLANZAPINE
     Indication: Substance use disorder
  13. OLANZAPINE [Suspect]
     Active Substance: OLANZAPINE
     Indication: Mania
  14. MIDOMAFETAMINE [Suspect]
     Active Substance: MIDOMAFETAMINE
     Indication: Mania
     Dosage: UNK
     Route: 065
  15. VALPROIC ACID [Suspect]
     Active Substance: VALPROIC ACID
     Indication: Bipolar disorder
     Dosage: UNK
     Route: 065
  16. VALPROIC ACID [Suspect]
     Active Substance: VALPROIC ACID
     Indication: Autism spectrum disorder
  17. VALPROIC ACID [Suspect]
     Active Substance: VALPROIC ACID
     Indication: Substance use disorder
  18. VALPROIC ACID [Suspect]
     Active Substance: VALPROIC ACID
     Indication: Mania
  19. VENLAFAXINE [Suspect]
     Active Substance: VENLAFAXINE HYDROCHLORIDE
     Indication: Bipolar disorder
     Dosage: UNK
     Route: 065
  20. VENLAFAXINE [Suspect]
     Active Substance: VENLAFAXINE HYDROCHLORIDE
     Indication: Autism spectrum disorder
  21. VENLAFAXINE [Suspect]
     Active Substance: VENLAFAXINE HYDROCHLORIDE
     Indication: Substance use disorder
  22. VENLAFAXINE [Suspect]
     Active Substance: VENLAFAXINE HYDROCHLORIDE
     Indication: Mania
  23. PIPAMPERONE [Suspect]
     Active Substance: PIPAMPERONE
     Indication: Bipolar disorder
     Dosage: UNK
     Route: 065
  24. PIPAMPERONE [Suspect]
     Active Substance: PIPAMPERONE
     Indication: Autism spectrum disorder
  25. PIPAMPERONE [Suspect]
     Active Substance: PIPAMPERONE
     Indication: Substance use disorder
  26. PIPAMPERONE [Suspect]
     Active Substance: PIPAMPERONE
     Indication: Mania
  27. QUETIAPINE [Suspect]
     Active Substance: QUETIAPINE
     Indication: Bipolar I disorder
     Dosage: UNK
     Route: 065
  28. QUETIAPINE [Suspect]
     Active Substance: QUETIAPINE
     Indication: Autism spectrum disorder
  29. QUETIAPINE [Suspect]
     Active Substance: QUETIAPINE
     Indication: Substance use disorder
  30. QUETIAPINE [Suspect]
     Active Substance: QUETIAPINE
     Indication: Mania
  31. MIRTAZAPINE [Suspect]
     Active Substance: MIRTAZAPINE
     Indication: Bipolar I disorder
     Dosage: UNK
     Route: 065
  32. MIRTAZAPINE [Suspect]
     Active Substance: MIRTAZAPINE
     Indication: Autism spectrum disorder
  33. MIRTAZAPINE [Suspect]
     Active Substance: MIRTAZAPINE
     Indication: Substance use disorder
  34. MIRTAZAPINE [Suspect]
     Active Substance: MIRTAZAPINE
     Indication: Mania
  35. LITHIUM [Suspect]
     Active Substance: LITHIUM
     Indication: Bipolar I disorder
     Dosage: UNK
     Route: 065
  36. LITHIUM [Suspect]
     Active Substance: LITHIUM
     Indication: Autism spectrum disorder
  37. LITHIUM [Suspect]
     Active Substance: LITHIUM
     Indication: Substance use disorder
  38. LITHIUM [Suspect]
     Active Substance: LITHIUM
     Indication: Mania
  39. LAMOTRIGINE [Suspect]
     Active Substance: LAMOTRIGINE
     Indication: Bipolar I disorder
     Dosage: UNK
     Route: 065
  40. LAMOTRIGINE [Suspect]
     Active Substance: LAMOTRIGINE
     Indication: Autism spectrum disorder
  41. LAMOTRIGINE [Suspect]
     Active Substance: LAMOTRIGINE
     Indication: Substance use disorder
  42. LAMOTRIGINE [Suspect]
     Active Substance: LAMOTRIGINE
     Indication: Mania
  43. CLONAZEPAM [Suspect]
     Active Substance: CLONAZEPAM
     Indication: Product used for unknown indication
     Dosage: UNK
     Route: 065
  44. PENFLURIDOL [Suspect]
     Active Substance: PENFLURIDOL
     Indication: Bipolar I disorder
     Dosage: UNK
     Route: 065
  45. PENFLURIDOL [Suspect]
     Active Substance: PENFLURIDOL
     Indication: Autism spectrum disorder
  46. PENFLURIDOL [Suspect]
     Active Substance: PENFLURIDOL
     Indication: Substance use disorder
  47. PENFLURIDOL [Suspect]
     Active Substance: PENFLURIDOL
     Indication: Mania

REACTIONS (9)
  - Paroxysmal perceptual alteration [Recovered/Resolved]
  - Oscillopsia [Recovered/Resolved]
  - Visual impairment [Recovered/Resolved]
  - Photopsia [Recovered/Resolved]
  - Vision blurred [Recovered/Resolved]
  - Anxiety [Recovered/Resolved]
  - Suicidal ideation [Unknown]
  - Hyperventilation [Unknown]
  - Off label use [Not Recovered/Not Resolved]
